FAERS Safety Report 5367120-9 (Version None)
Quarter: 2007Q2

REPORT INFORMATION
  Report Type: 
  Country: None (occurrence: None)
  Receive Date: 20070622
  Receipt Date: 20060718
  Transmission Date: 20071010
  Serious: No
  Sender: FDA-Public Use
  Company Number: US-BRISTOL-MYERS SQUIBB COMPANY-13445184

PATIENT
  Age: 82 Year
  Sex: Male

DRUGS (1)
  1. SINEMET CR [Suspect]
     Indication: PARKINSON'S DISEASE
     Dosage: 250MG/25MG, O.5MG TABLET THREE TIMES A DAY.
     Route: 048

REACTIONS (1)
  - GLOSSODYNIA [None]
